FAERS Safety Report 17450077 (Version 1)
Quarter: 2020Q1

REPORT INFORMATION
  Report Type: Spontaneous
  Country: US (occurrence: US)
  Receive Date: 20200216
  Receipt Date: 20200216
  Transmission Date: 20200409
  Serious: Yes (Other)
  Sender: FDA-Public Use
  Company Number: None

PATIENT
  Age: 57 Year
  Sex: Female
  Weight: 78.75 kg

DRUGS (5)
  1. RM FLEX [Suspect]
     Active Substance: DIETARY SUPPLEMENT
     Dosage: ?          QUANTITY:1 CAPSULE(S);?
     Route: 048
  2. RMFLEX 850MG [Concomitant]
  3. SERTRALINE [Concomitant]
     Active Substance: SERTRALINE HYDROCHLORIDE
  4. QUETIAPINE 25MG [Concomitant]
     Active Substance: QUETIAPINE
  5. FOLIC ACID 1MG [Concomitant]
     Active Substance: FOLIC ACID

REACTIONS (4)
  - Menopause [None]
  - Menstruation normal [None]
  - Irritable bowel syndrome [None]
  - Weight increased [None]

NARRATIVE: CASE EVENT DATE: 20200214
